FAERS Safety Report 5842443-5 (Version None)
Quarter: 2008Q3

REPORT INFORMATION
  Report Type: 
  Country: None (occurrence: None)
  Receive Date: 20080731
  Receipt Date: 20080626
  Transmission Date: 20090109
  Serious: No
  Sender: FDA-Public Use
  Company Number: US200806006258

PATIENT
  Age: 50 Year
  Sex: Male
  Weight: 149.7 kg

DRUGS (3)
  1. BYETTA [Suspect]
     Indication: WEIGHT CONTROL
     Dosage: 5 UG, 2/D, SUBCUTANEOUS; 10 UG, 2/D, SUBCUTANEOUS
     Route: 058
     Dates: start: 20080401, end: 20080501
  2. BYETTA [Suspect]
     Indication: WEIGHT CONTROL
     Dosage: 5 UG, 2/D, SUBCUTANEOUS; 10 UG, 2/D, SUBCUTANEOUS
     Route: 058
     Dates: start: 20080501, end: 20080623
  3. METFORMIN HCL [Concomitant]

REACTIONS (7)
  - ANXIETY [None]
  - APATHY [None]
  - BLOOD GLUCOSE INCREASED [None]
  - IRRITABILITY [None]
  - LISTLESS [None]
  - STRESS [None]
  - THINKING ABNORMAL [None]
